FAERS Safety Report 20724354 (Version 1)
Quarter: 2022Q2

REPORT INFORMATION
  Report Type: Spontaneous
  Country: JP (occurrence: JP)
  Receive Date: 20220419
  Receipt Date: 20220419
  Transmission Date: 20220721
  Serious: Yes (Hospitalization)
  Sender: FDA-Public Use
  Company Number: JP-PFIZER INC-202200550959

PATIENT
  Age: 28 Year
  Sex: Male

DRUGS (2)
  1. METRONIDAZOLE [Suspect]
     Active Substance: METRONIDAZOLE
     Dosage: AROUND 10-DAY-LONG ADMINISTRATION
     Route: 041
     Dates: start: 202201
  2. METRONIDAZOLE [Suspect]
     Active Substance: METRONIDAZOLE
     Dosage: UNK
     Route: 048
     Dates: start: 202112

REACTIONS (4)
  - Encephalopathy [Unknown]
  - Hypoaesthesia [Unknown]
  - Dysphonia [Unknown]
  - Altered state of consciousness [Unknown]
